FAERS Safety Report 5796857-2 (Version None)
Quarter: 2008Q3

REPORT INFORMATION
  Report Type: 
  Country: None (occurrence: None)
  Receive Date: 20080701
  Receipt Date: 20080623
  Transmission Date: 20090109
  Serious: Yes (Hospitalization)
  Sender: FDA-Public Use
  Company Number: BE-AVENTIS-200816029GDDC

PATIENT
  Sex: Male

DRUGS (1)
  1. TAXOTERE [Suspect]
     Indication: BRONCHIAL CARCINOMA
     Route: 042
     Dates: start: 20080325, end: 20080501

REACTIONS (4)
  - ARRHYTHMIA [None]
  - LOSS OF CONSCIOUSNESS [None]
  - PHOTOSENSITIVITY REACTION [None]
  - PYREXIA [None]
